FAERS Safety Report 5289376-3 (Version None)
Quarter: 2007Q2

REPORT INFORMATION
  Report Type: 
  Country: None (occurrence: None)
  Receive Date: 20070406
  Receipt Date: 20070404
  Transmission Date: 20071010
  Serious: Yes (Hospitalization)
  Sender: FDA-Public Use
  Company Number: DE-BRISTOL-MYERS SQUIBB COMPANY-13739784

PATIENT
  Age: 67 Year
  Sex: Male

DRUGS (4)
  1. BARACLUDE [Suspect]
     Route: 048
     Dates: start: 20070315, end: 20070329
  2. PLAVIX [Concomitant]
  3. ACERCOMP [Concomitant]
  4. CARVEDILOL [Concomitant]

REACTIONS (3)
  - ARTERIAL DISORDER [None]
  - CHEST DISCOMFORT [None]
  - NAUSEA [None]
